FAERS Safety Report 10933569 (Version 3)
Quarter: 2015Q2

REPORT INFORMATION
  Report Type: Report from Study
  Country: US (occurrence: US)
  Receive Date: 20150320
  Receipt Date: 20150423
  Transmission Date: 20150821
  Serious: Yes (Hospitalization)
  Sender: FDA-Public Use
  Company Number: US-ABBVIE-15P-163-1360043-00

PATIENT
  Age: 66 Year
  Sex: Male
  Weight: 84.9 kg

DRUGS (8)
  1. CARDURA [Concomitant]
     Active Substance: DOXAZOSIN MESYLATE
     Indication: BENIGN PROSTATIC HYPERPLASIA
  2. PLENDIL [Concomitant]
     Active Substance: FELODIPINE
     Indication: PRODUCT USED FOR UNKNOWN INDICATION
  3. NEURONTIN [Concomitant]
     Active Substance: GABAPENTIN
     Indication: NEUROPATHY PERIPHERAL
  4. OMEGA 3 [Concomitant]
     Active Substance: OMEGA-3 FATTY ACIDS
     Indication: HYPERLIPIDAEMIA
  5. MULTIVITAMIN [Concomitant]
     Active Substance: VITAMINS
     Indication: VITAMIN SUPPLEMENTATION
  6. SAW PALMETTO [Concomitant]
     Active Substance: SAW PALMETTO
     Indication: PRODUCT USED FOR UNKNOWN INDICATION
  7. VIEKIRA PAK [Suspect]
     Active Substance: DASABUVIR\OMBITASVIR\PARITAPREVIR\RITONAVIR
     Indication: CHRONIC HEPATITIS C
     Dosage: TWO PINK TABS WITH 1 BEIGE TAB QAM, 1 BEIGE TAB Q PM
     Route: 048
     Dates: start: 20150213, end: 20150218
  8. FENUGREEK [Concomitant]
     Indication: PRODUCT USED FOR UNKNOWN INDICATION

REACTIONS (8)
  - Tubulointerstitial nephritis [Recovered/Resolved]
  - Eosinophils urine present [Recovered/Resolved]
  - Acute kidney injury [Recovering/Resolving]
  - Fluid overload [Recovered/Resolved]
  - Oedema peripheral [Recovering/Resolving]
  - Chronic kidney disease [Recovering/Resolving]
  - Abdominal distension [Recovering/Resolving]
  - Blood creatinine increased [Recovered/Resolved]

NARRATIVE: CASE EVENT DATE: 20150218
